FAERS Safety Report 23828721 (Version 1)
Quarter: 2024Q2

REPORT INFORMATION
  Report Type: Spontaneous
  Country: US (occurrence: US)
  Receive Date: 20240508
  Receipt Date: 20240508
  Transmission Date: 20240716
  Serious: No
  Sender: FDA-Public Use
  Company Number: US-E2BLSMVVAL-SPO/USA/24/0006645

PATIENT
  Age: 75 Year
  Sex: Female

DRUGS (1)
  1. CLOPIDOGREL BISULFATE [Suspect]
     Active Substance: CLOPIDOGREL BISULFATE
     Indication: Thrombosis

REACTIONS (5)
  - Muscular weakness [Unknown]
  - Bone pain [Unknown]
  - Gait disturbance [Unknown]
  - Balance disorder [Unknown]
  - Arthralgia [Unknown]
